FAERS Safety Report 10227426 (Version 2)
Quarter: 2014Q3

REPORT INFORMATION
  Report Type: Spontaneous
  Country: US (occurrence: US)
  Receive Date: 20140610
  Receipt Date: 20140707
  Transmission Date: 20150326
  Serious: No
  Sender: FDA-Public Use
  Company Number: US-PFIZER INC-2014157474

PATIENT
  Sex: Female

DRUGS (2)
  1. DEPO-MEDROL [Suspect]
     Active Substance: METHYLPREDNISOLONE ACETATE
     Indication: JOINT SWELLING
     Dosage: UNK
  2. XYLOCAINE [Suspect]
     Active Substance: LIDOCAINE HYDROCHLORIDE
     Dosage: UNK

REACTIONS (6)
  - Swollen tongue [Recovered/Resolved]
  - Hypersensitivity [Unknown]
  - Stomatitis [Recovered/Resolved]
  - Spinal disorder [Unknown]
  - Spinal column stenosis [Unknown]
  - Mouth swelling [Unknown]
